FAERS Safety Report 7055913-1 (Version None)
Quarter: 2010Q4

REPORT INFORMATION
  Report Type: 
  Country: None (occurrence: None)
  Receive Date: 20101021
  Receipt Date: 20101012
  Transmission Date: 20110411
  Serious: Yes (Hospitalization)
  Sender: FDA-Public Use
  Company Number: A0744980A

PATIENT
  Age: 46 Year
  Sex: Female
  Weight: 81.8 kg

DRUGS (4)
  1. AVANDIA [Suspect]
     Indication: TYPE 2 DIABETES MELLITUS
     Dosage: 8MG PER DAY
     Route: 048
     Dates: start: 20000801, end: 20070601
  2. GLUCOPHAGE [Concomitant]
  3. METFORMIN [Concomitant]
  4. AMARYL [Concomitant]

REACTIONS (18)
  - ABDOMINAL PAIN [None]
  - ANAEMIA [None]
  - ANGINA PECTORIS [None]
  - BLOOD TRIGLYCERIDES INCREASED [None]
  - CARDIAC FAILURE CONGESTIVE [None]
  - CARDIOVASCULAR DISORDER [None]
  - CORONARY ARTERY DISEASE [None]
  - CORONARY ARTERY STENOSIS [None]
  - FATIGUE [None]
  - MYOCARDIAL INFARCTION [None]
  - NAUSEA [None]
  - NEPHROPATHY [None]
  - OEDEMA [None]
  - PULMONARY HYPERTENSION [None]
  - RENAL FAILURE ACUTE [None]
  - STRESS [None]
  - TRANSIENT ISCHAEMIC ATTACK [None]
  - VOMITING [None]
